FAERS Safety Report 18349613 (Version 2)
Quarter: 2020Q4

REPORT INFORMATION
  Report Type: Spontaneous
  Country: GB (occurrence: GB)
  Receive Date: 20201006
  Receipt Date: 20201009
  Transmission Date: 20210114
  Serious: Yes (Other)
  Sender: FDA-Public Use
  Company Number: GB-PFIZER INC-2020380797

PATIENT
  Age: 5 Year
  Sex: Male

DRUGS (6)
  1. REMDESIVIR. [Concomitant]
     Active Substance: REMDESIVIR
     Indication: COVID-19
     Dosage: 5 MG/KG
     Route: 042
  2. REMDESIVIR. [Concomitant]
     Active Substance: REMDESIVIR
     Dosage: 2.5 MG/KG, DAILY
     Route: 042
  3. VINCRISTINE SULFATE. [Suspect]
     Active Substance: VINCRISTINE SULFATE
     Indication: B-CELL TYPE ACUTE LEUKAEMIA
     Dosage: UNK, CYCLIC
  4. DEXAMETHASONE SODIUM PHOSPHATE. [Suspect]
     Active Substance: DEXAMETHASONE SODIUM PHOSPHATE
     Indication: B-CELL TYPE ACUTE LEUKAEMIA
     Dosage: UNK, CYCLIC
  5. PEG/L-ASPARAGINASE [Suspect]
     Active Substance: PEGASPARGASE
     Indication: B-CELL TYPE ACUTE LEUKAEMIA
     Dosage: UNK, CYCLIC
  6. METHOTREXATE SODIUM. [Suspect]
     Active Substance: METHOTREXATE SODIUM
     Indication: B-CELL TYPE ACUTE LEUKAEMIA
     Dosage: UNK, CYCLIC
     Route: 037

REACTIONS (1)
  - Alanine aminotransferase increased [Recovered/Resolved]
